FAERS Safety Report 9507474 (Version 4)
Quarter: 2014Q1

REPORT INFORMATION
  Report Type: Spontaneous
  Country: US (occurrence: US)
  Receive Date: 20130909
  Receipt Date: 20140114
  Transmission Date: 20141002
  Serious: Yes (Hospitalization, Other)
  Sender: FDA-Public Use
  Company Number: US-009507513-1203USA02846

PATIENT
  Sex: Female
  Weight: 104.5 kg

DRUGS (19)
  1. FOSAMAX [Suspect]
     Indication: OSTEOPENIA
     Dosage: 70 MG, QW
     Route: 048
     Dates: start: 200201
  2. FOSAMAX [Suspect]
     Indication: OSTEOPENIA
     Route: 048
  3. LORATADINE [Concomitant]
     Indication: HYPERSENSITIVITY
     Dosage: UNK
     Dates: start: 2005
  4. OXYCODONE [Concomitant]
     Indication: PAIN
     Dosage: UNK
     Dates: start: 2002
  5. OXYCONTIN [Concomitant]
     Indication: PAIN
     Dosage: UNK
     Dates: start: 2002
  6. OPANA [Concomitant]
     Indication: PAIN
  7. ROXICODONE [Concomitant]
     Indication: PAIN
  8. SOMA [Concomitant]
     Indication: PAIN
  9. ZANAFLEX [Concomitant]
     Indication: PAIN
  10. FLEXERIL [Concomitant]
     Indication: PAIN
  11. ELAVIL (AMITRIPTYLINE HYDROCHLORIDE) [Concomitant]
     Indication: PAIN
  12. CELEBREX [Concomitant]
     Indication: PAIN
  13. NAPROXEN [Concomitant]
     Indication: PAIN
  14. MORPHINE [Concomitant]
     Indication: PAIN
  15. PERCOCET [Concomitant]
     Indication: PAIN
  16. LORTAB [Concomitant]
     Indication: PAIN
  17. LYRICA [Concomitant]
     Indication: PAIN
  18. FENTANYL [Concomitant]
     Indication: PAIN
     Route: 062
  19. ALENDRONATE SODIUM [Suspect]
     Indication: OSTEOPENIA
     Dosage: 70 MG, UNK
     Route: 048
     Dates: start: 20080228, end: 20110228

REACTIONS (86)
  - Femur fracture [Unknown]
  - Intramedullary rod insertion [Unknown]
  - Exercise tolerance decreased [Unknown]
  - Escherichia urinary tract infection [Unknown]
  - Renal failure acute [Recovering/Resolving]
  - Mental status changes [Unknown]
  - Renal failure [Unknown]
  - Cerebrovascular accident [Unknown]
  - Myocardial infarction [Unknown]
  - Deafness [Unknown]
  - Knee arthroplasty [Unknown]
  - Uterine cancer [Unknown]
  - Haematoma [Unknown]
  - Haematoma evacuation [Unknown]
  - Convulsion [Unknown]
  - Mental status changes [Unknown]
  - Shoulder arthroplasty [Unknown]
  - Shoulder arthroplasty [Unknown]
  - Bone graft [Unknown]
  - Joint arthroplasty [Unknown]
  - Joint irrigation [Unknown]
  - Humerus fracture [Unknown]
  - Comminuted fracture [Unknown]
  - Craniotomy [Unknown]
  - Open reduction of fracture [Unknown]
  - Low turnover osteopathy [Unknown]
  - Dental caries [Unknown]
  - Spinal osteoarthritis [Unknown]
  - Joint irrigation [Unknown]
  - Osteoporosis [Unknown]
  - Debridement [Unknown]
  - Anaemia [Unknown]
  - Fall [Unknown]
  - Staphylococcal infection [Unknown]
  - Hypoaesthesia [Unknown]
  - Insomnia [Unknown]
  - Rotator cuff syndrome [Unknown]
  - Intervertebral disc degeneration [Unknown]
  - Intervertebral disc degeneration [Unknown]
  - Paraesthesia [Unknown]
  - Osteoarthritis [Unknown]
  - Transplant failure [Unknown]
  - Infection [Unknown]
  - Hyperlipidaemia [Unknown]
  - Hypothyroidism [Unknown]
  - Unevaluable event [Unknown]
  - Bradycardia [Unknown]
  - Scoliosis [Unknown]
  - Osteoarthritis [Unknown]
  - Gait disturbance [Unknown]
  - Peripheral coldness [Unknown]
  - Hypokalaemia [Unknown]
  - Neuritis [Unknown]
  - Radiculitis lumbosacral [Unknown]
  - Osteoarthritis [Unknown]
  - Myoclonus [Recovered/Resolved]
  - Appendicectomy [Unknown]
  - Angina pectoris [Unknown]
  - Migraine [Unknown]
  - Hypertension [Unknown]
  - Parkinson^s disease [Unknown]
  - Anxiety disorder [Unknown]
  - Staphylococcal infection [Not Recovered/Not Resolved]
  - Cardiac failure congestive [Unknown]
  - Depression [Unknown]
  - Arthroscopy [Unknown]
  - Coronary artery disease [Unknown]
  - Transient ischaemic attack [Unknown]
  - Bladder discomfort [Unknown]
  - Endocrine disorder [Unknown]
  - Haematoma [Recovering/Resolving]
  - Muscular weakness [Unknown]
  - Exostosis [Unknown]
  - Pain [Not Recovered/Not Resolved]
  - Nephrolithiasis [Unknown]
  - Tuberculosis [Unknown]
  - Panic attack [Unknown]
  - Abdominal discomfort [Unknown]
  - Musculoskeletal pain [Unknown]
  - Drug ineffective [Unknown]
  - Constipation [Unknown]
  - Constipation [Unknown]
  - Gastrooesophageal reflux disease [Unknown]
  - Headache [Unknown]
  - Bone pain [Recovering/Resolving]
  - Oedema peripheral [Recovering/Resolving]
